FAERS Safety Report 6230419-8 (Version None)
Quarter: 2009Q2

REPORT INFORMATION
  Report Type: 
  Country: None (occurrence: None)
  Receive Date: 20090615
  Receipt Date: 20090324
  Transmission Date: 20091009
  Serious: No
  Sender: FDA-Public Use
  Company Number: US-ABBOTT-09P-163-0564874-00

PATIENT
  Sex: Male
  Weight: 99.88 kg

DRUGS (1)
  1. TRILIPIX [Suspect]
     Indication: DYSLIPIDAEMIA
     Route: 048
     Dates: start: 20090213, end: 20090315

REACTIONS (2)
  - NAUSEA [None]
  - RASH [None]
